FAERS Safety Report 5307116-6 (Version None)
Quarter: 2007Q2

REPORT INFORMATION
  Report Type: 
  Country: None (occurrence: None)
  Receive Date: 20070423
  Receipt Date: 20070423
  Transmission Date: 20071010
  Serious: No
  Sender: FDA-Public Use
  Company Number: None

PATIENT
  Sex: Female

DRUGS (2)
  1. ROCEPHIN [Suspect]
     Indication: POST PROCEDURAL INFECTION
     Dosage: DAILY 16M DAILY IV
     Route: 042
     Dates: start: 20070416, end: 20070419
  2. VANCOMYCIN [Suspect]
     Indication: POST PROCEDURAL INFECTION
     Dosage: 750 MG DAILY IV
     Route: 042
     Dates: start: 20070416

REACTIONS (1)
  - RASH [None]
